FAERS Safety Report 6967428-7 (Version None)
Quarter: 2010Q3

REPORT INFORMATION
  Report Type: 
  Country: None (occurrence: None)
  Receive Date: 20100907
  Receipt Date: 20100827
  Transmission Date: 20110219
  Serious: Yes (Hospitalization, Other)
  Sender: FDA-Public Use
  Company Number: US-ELI_LILLY_AND_COMPANY-US201008008751

PATIENT
  Sex: Female

DRUGS (4)
  1. HUMALOG MIX 75/25 [Suspect]
     Indication: DIABETES MELLITUS
     Dosage: 25 U, EACH MORNING
  2. HUMALOG MIX 75/25 [Suspect]
     Dosage: 35 U, EACH EVENING
  3. HUMALOG MIX 75/25 [Suspect]
     Dosage: 25 U, EACH MORNING
  4. HUMALOG MIX 75/25 [Suspect]
     Dosage: 35 U, EACH EVENING

REACTIONS (2)
  - FALL [None]
  - JOINT INJURY [None]
